FAERS Safety Report 17104659 (Version 1)
Quarter: 2019Q4

REPORT INFORMATION
  Report Type: Spontaneous
  Country: US (occurrence: US)
  Receive Date: 20191203
  Receipt Date: 20191203
  Transmission Date: 20200122
  Serious: No
  Sender: FDA-Public Use
  Company Number: US-UCBSA-2018001498

PATIENT
  Sex: Female

DRUGS (2)
  1. CIMZIA [Suspect]
     Active Substance: CERTOLIZUMAB PEGOL
     Indication: JUVENILE IDIOPATHIC ARTHRITIS
     Dosage: UNKNOWN DOSE FOR 4.7 YEARS
  2. CIMZIA [Suspect]
     Active Substance: CERTOLIZUMAB PEGOL
     Indication: OFF LABEL USE
     Dosage: 200 MG, EV 4 WEEKS FOR LAST 4 MONTHS

REACTIONS (4)
  - Diarrhoea [Unknown]
  - Double stranded DNA antibody [Unknown]
  - Mycobacterium tuberculosis complex test positive [Unknown]
  - Off label use [Unknown]
